FAERS Safety Report 24669366 (Version 2)
Quarter: 2024Q4

REPORT INFORMATION
  Report Type: Spontaneous
  Country: FR (occurrence: FR)
  Receive Date: 20241127
  Receipt Date: 20241210
  Transmission Date: 20250114
  Serious: Yes (Hospitalization)
  Sender: NOVARTIS
  Company Number: None

PATIENT
  Age: 24 Year
  Sex: Male
  Weight: 95.5 kg

DRUGS (2)
  1. TEGRETOL [Suspect]
     Active Substance: CARBAMAZEPINE
     Indication: Bipolar disorder
     Dosage: 400 MG (200 MG X2 /JOUR, COMPRIM? PELLICUL? S?CABLE ? LIB?RATION PROLONG?E)
     Route: 048
     Dates: start: 20210901, end: 20240724
  2. MELATONIN [Suspect]
     Active Substance: MELATONIN
     Indication: Product used for unknown indication
     Dosage: 2 MG (1 CP /JOUR ? 22H, COMPRIM? ? LIB?RATION PROLONG?E)
     Route: 048
     Dates: start: 20240702, end: 20240724

REACTIONS (3)
  - Toxicity to various agents [Recovered/Resolved]
  - Coma [Recovered/Resolved]
  - Hypertonia [Recovered/Resolved]

NARRATIVE: CASE EVENT DATE: 20240723
